FAERS Safety Report 9067734 (Version 1)
Quarter: 2013Q1

REPORT INFORMATION
  Report Type: Spontaneous
  Country: US (occurrence: US)
  Receive Date: 20130206
  Receipt Date: 20130206
  Transmission Date: 20140127
  Serious: Yes (Other)
  Sender: FDA-Public Use
  Company Number: US-PFIZER INC-2013042845

PATIENT
  Sex: Female

DRUGS (2)
  1. OXYCODONE HYDROCHLORIDE [Suspect]
     Dosage: UNK
  2. OXYCONTIN [Suspect]
     Dosage: 80 MG, 2X/DAY

REACTIONS (3)
  - Diabetes mellitus [Unknown]
  - Nerve compression [Unknown]
  - Fibromyalgia [Unknown]
